FAERS Safety Report 8623271 (Version 20)
Quarter: 2017Q3

REPORT INFORMATION
  Report Type: Report from Study
  Country: CA (occurrence: CA)
  Receive Date: 20120620
  Receipt Date: 20170926
  Transmission Date: 20171128
  Serious: Yes (Life-Threatening, Hospitalization, Other)
  Sender: FDA-Public Use
  Company Number: PHHY2012CA038467

PATIENT
  Age: 57 Year
  Sex: Female

DRUGS (3)
  1. APO-PAROXETINE [Concomitant]
     Active Substance: PAROXETINE
     Indication: PRODUCT USED FOR UNKNOWN INDICATION
     Route: 065
  2. SANDOSTATIN LAR DEPOT [Suspect]
     Active Substance: OCTREOTIDE ACETATE
     Indication: GASTRINOMA
     Dosage: 30 MG, QMO (EVERY 4 WEEKS)
     Route: 030
     Dates: start: 20110815
  3. SANDOSTATIN LAR DEPOT [Suspect]
     Active Substance: OCTREOTIDE ACETATE
     Dosage: 30 MG, QMO (EVERY 4 WEEKS)
     Route: 030

REACTIONS (34)
  - Suicidal ideation [Unknown]
  - Nephrolithiasis [Unknown]
  - Anxiety [Unknown]
  - Mass [Recovered/Resolved]
  - Blood pressure increased [Unknown]
  - Gait disturbance [Unknown]
  - Epistaxis [Unknown]
  - Asthenia [Unknown]
  - Dyspnoea [Unknown]
  - Polyp [Recovered/Resolved]
  - Depressed mood [Unknown]
  - Emotional distress [Unknown]
  - Vomiting [Unknown]
  - Circulatory collapse [Unknown]
  - Urinary tract infection [Unknown]
  - Palpitations [Unknown]
  - Influenza [Unknown]
  - Blood pressure systolic increased [Unknown]
  - Dizziness [Unknown]
  - Pancreatitis [Unknown]
  - Procedural complication [Unknown]
  - Hunger [Unknown]
  - Tremor [Unknown]
  - Insomnia [Unknown]
  - Fall [Unknown]
  - Fatigue [Unknown]
  - Nausea [Unknown]
  - Dehydration [Unknown]
  - Cystitis [Unknown]
  - Crying [Unknown]
  - Fibromyalgia [Unknown]
  - Movement disorder [Unknown]
  - Nasal dryness [Unknown]
  - Headache [Unknown]

NARRATIVE: CASE EVENT DATE: 20130717
